FAERS Safety Report 6554997-4 (Version None)
Quarter: 2010Q1

REPORT INFORMATION
  Report Type: 
  Country: None (occurrence: None)
  Receive Date: 20100126
  Receipt Date: 20100126
  Transmission Date: 20100710
  Serious: Yes (Life-Threatening, Hospitalization)
  Sender: FDA-Public Use
  Company Number: None

PATIENT
  Age: 56 Year
  Sex: Male
  Weight: 104.5 kg

DRUGS (2)
  1. ZYPREXA ZYDIS [Suspect]
     Indication: BIPOLAR DISORDER
     Dosage: 5 MG BID BUCCAL
     Route: 002
     Dates: start: 20100117, end: 20100123
  2. SEROQUEL [Concomitant]

REACTIONS (2)
  - HYPERTHERMIA [None]
  - NEUROLEPTIC MALIGNANT SYNDROME [None]
